FAERS Safety Report 4773099-0 (Version None)
Quarter: 2005Q3

REPORT INFORMATION
  Report Type: 
  Country: None (occurrence: None)
  Receive Date: 20050916
  Receipt Date: 20050830
  Transmission Date: 20060218
  Serious: Yes (Other)
  Sender: FDA-Public Use
  Company Number: 2005107963

PATIENT
  Sex: Female
  Weight: 43 kg

DRUGS (3)
  1. CELEBREX [Suspect]
     Indication: ARTHRITIS
     Dosage: 200 MG, ORAL
     Route: 048
     Dates: start: 20050405, end: 20050413
  2. LIVIAL [Concomitant]
  3. CALCIUM (CALCIUM) [Concomitant]

REACTIONS (2)
  - ASTHMA [None]
  - DISEASE RECURRENCE [None]
